FAERS Safety Report 4396561-1 (Version None)
Quarter: 2004Q2

REPORT INFORMATION
  Report Type: 
  Country: None (occurrence: None)
  Receive Date: 20040621
  Receipt Date: 20020214
  Transmission Date: 20050107
  Serious: Yes (Death)
  Sender: FDA-Public Use
  Company Number: USA-2002-0000111

PATIENT
  Age: 63 Year
  Sex: Male

DRUGS (5)
  1. OXYCODONE HCL CR TABLETS (SIMILAR TO NDA 20-553) OXYCODONE HYDROCHLORI [Suspect]
  2. MORPHINE SULFATE [Suspect]
  3. MORPHINE SULFATE [Suspect]
  4. MIRTAZAPINE [Suspect]
  5. ETHANOL (ETHANOL) [Suspect]

REACTIONS (2)
  - INTENTIONAL OVERDOSE [None]
  - MULTIPLE DRUG OVERDOSE [None]
